FAERS Safety Report 12728033 (Version 4)
Quarter: 2016Q4

REPORT INFORMATION
  Report Type: Spontaneous
  Country: BR (occurrence: BR)
  Receive Date: 20160909
  Receipt Date: 20161121
  Transmission Date: 20170207
  Serious: Yes (Other)
  Sender: FDA-Public Use
  Company Number: BR-REGENERON PHARMACEUTICALS, INC.-2016-20862

PATIENT

DRUGS (4)
  1. EYLEA [Suspect]
     Active Substance: AFLIBERCEPT
     Indication: AGE-RELATED MACULAR DEGENERATION
     Dosage: RIGHT EYE
     Route: 031
  2. POVIDONE [Concomitant]
     Active Substance: POVIDONE
     Indication: PROPHYLAXIS
  3. EYLEA [Interacting]
     Active Substance: AFLIBERCEPT
     Dosage: RIGHT EYE, LAST INJECTION PRIOR TO THE EVENT (TOTAL OF 5 INJECTIONS)
     Route: 031
     Dates: start: 20160408, end: 20160408
  4. VIGAMOX [Concomitant]
     Active Substance: MOXIFLOXACIN HYDROCHLORIDE
     Indication: ANTIBIOTIC PROPHYLAXIS

REACTIONS (5)
  - Vitritis [Unknown]
  - Device interaction [Unknown]
  - Syringe issue [Unknown]
  - Eye operation complication [Unknown]
  - Multiple use of single-use product [Unknown]

NARRATIVE: CASE EVENT DATE: 201604
